FAERS Safety Report 19758162 (Version 1)
Quarter: 2021Q3

REPORT INFORMATION
  Report Type: Spontaneous
  Country: US (occurrence: US)
  Receive Date: 20210827
  Receipt Date: 20210827
  Transmission Date: 20211014
  Serious: No
  Sender: FDA-Public Use
  Company Number: US-BIOMARINAP-US-2021-138246

PATIENT
  Sex: Female
  Weight: 70.48 kg

DRUGS (2)
  1. CLONIDINE HCL [Concomitant]
     Active Substance: CLONIDINE HYDROCHLORIDE
     Indication: PRODUCT USED FOR UNKNOWN INDICATION
  2. KUVAN [Suspect]
     Active Substance: SAPROPTERIN DIHYDROCHLORIDE
     Indication: PHENYLKETONURIA
     Dosage: 100 MILLIGRAM, EVERY 5 DAYS
     Route: 048

REACTIONS (4)
  - Eye pain [Unknown]
  - Eye injury [Unknown]
  - Thyroid mass [Unknown]
  - Weight increased [Unknown]
